FAERS Safety Report 21481764 (Version 1)
Quarter: 2022Q4

REPORT INFORMATION
  Report Type: Spontaneous
  Country: IT (occurrence: IT)
  Receive Date: 20221020
  Receipt Date: 20221020
  Transmission Date: 20230113
  Serious: Yes (Hospitalization, Other)
  Sender: FDA-Public Use
  Company Number: IT-MINISAL02-888205

PATIENT
  Age: 71 Year
  Sex: Female

DRUGS (4)
  1. OLMESARTAN [Suspect]
     Active Substance: OLMESARTAN
     Indication: Hypertension
     Dosage: UNK
     Route: 048
     Dates: start: 202112
  2. AMLODIPINE [Concomitant]
     Active Substance: AMLODIPINE BESYLATE
     Indication: Hypertension
     Dosage: AMLODIPINA 10 MG 1 CP DIE (AMLODIPINE 10 MG 1 TABLET PER DAY)
     Route: 065
     Dates: start: 202112
  3. LEVOTHYROXINE [Concomitant]
     Active Substance: LEVOTHYROXINE
     Indication: Hypothyroidism
     Dosage: LEVOTIROXINA 150 MCG 1 CP ORE 7(LEVOTHYROXINE 150 MCG 1 TABLET 7 HOURS)
     Route: 065
     Dates: start: 201003
  4. NEBIVOLOL [Concomitant]
     Active Substance: NEBIVOLOL
     Indication: Hypertension
     Dosage: NEBIVOLOLO 5 MG 0.5 COMPRESSA ORE 8(NEBIVOLOL 5 MG 0.5 TABLET 8 HOURS)
     Route: 065
     Dates: start: 202112

REACTIONS (5)
  - Sprue-like enteropathy [Recovering/Resolving]
  - Hypokalaemia [Recovering/Resolving]
  - Weight decreased [Recovering/Resolving]
  - Metabolic acidosis [Recovering/Resolving]
  - Hypocalcaemia [Recovering/Resolving]

NARRATIVE: CASE EVENT DATE: 20220820
